FAERS Safety Report 13372905 (Version 1)
Quarter: 2017Q1

REPORT INFORMATION
  Report Type: Spontaneous
  Country: FR (occurrence: FR)
  Receive Date: 20170327
  Receipt Date: 20170327
  Transmission Date: 20170429
  Serious: Yes (Other)
  Sender: FDA-Public Use
  Company Number: FR-009507513-1703FRA010643

PATIENT
  Sex: Female

DRUGS (2)
  1. SINEMET [Suspect]
     Active Substance: CARBIDOPA\LEVODOPA
     Indication: PARKINSON^S DISEASE
     Dosage: UNK
     Route: 048
     Dates: start: 2012
  2. XARELTO [Concomitant]
     Active Substance: RIVAROXABAN

REACTIONS (9)
  - Thyroid disorder [Unknown]
  - Incontinence [Unknown]
  - Disorientation [Unknown]
  - Cognitive disorder [Unknown]
  - White matter lesion [Unknown]
  - Dehydration [Unknown]
  - Fall [Unknown]
  - Vascular dementia [Unknown]
  - Confusional state [Unknown]

NARRATIVE: CASE EVENT DATE: 2012
